FAERS Safety Report 7606615-1 (Version None)
Quarter: 2011Q3

REPORT INFORMATION
  Report Type: 
  Country: None (occurrence: None)
  Receive Date: 20110713
  Receipt Date: 20110706
  Transmission Date: 20111222
  Serious: Yes (Disabling, Other)
  Sender: FDA-Public Use
  Company Number: PHHY2011GB59644

PATIENT
  Age: 60 Year
  Sex: Male

DRUGS (4)
  1. THIAMINE [Concomitant]
     Indication: ALCOHOL ABUSE
     Dosage: 100 MG, UNK
     Route: 048
  2. FERROUS SULFATE TAB [Concomitant]
     Indication: ANAEMIA
     Dosage: 200 MG, BID
     Route: 048
  3. QUININE SULFATE [Concomitant]
     Indication: MUSCLE SPASMS
     Dosage: 300 MG, QD
     Route: 048
  4. OMEPRAZOLE [Suspect]
     Indication: DYSPEPSIA
     Dosage: 20 MG, UNK
     Route: 048
     Dates: start: 20030101, end: 20110425

REACTIONS (3)
  - HYPOCALCAEMIA [None]
  - HYPOMAGNESAEMIA [None]
  - GRAND MAL CONVULSION [None]
